FAERS Safety Report 23479014 (Version 3)
Quarter: 2024Q2

REPORT INFORMATION
  Report Type: Report from Study
  Country: US (occurrence: US)
  Receive Date: 20240205
  Receipt Date: 20240404
  Transmission Date: 20240716
  Serious: No
  Sender: FDA-Public Use
  Company Number: US-002147023-NVSC2024US023760

PATIENT
  Sex: Female

DRUGS (1)
  1. KESIMPTA [Suspect]
     Active Substance: OFATUMUMAB
     Indication: Multiple sclerosis
     Dosage: UNK
     Route: 065

REACTIONS (8)
  - Fall [Unknown]
  - Wrist fracture [Unknown]
  - Osteoarthritis [Unknown]
  - Gait disturbance [Unknown]
  - Glycosylated haemoglobin decreased [Unknown]
  - Joint injury [Unknown]
  - Joint swelling [Unknown]
  - Pain [Unknown]
